FAERS Safety Report 7630581-6 (Version None)
Quarter: 2011Q3

REPORT INFORMATION
  Report Type: 
  Country: None (occurrence: None)
  Receive Date: 20110722
  Receipt Date: 20110719
  Transmission Date: 20111222
  Serious: Yes (Other)
  Sender: FDA-Public Use
  Company Number: US-BAYER-2011-063349

PATIENT
  Age: 48 Year
  Sex: Female
  Weight: 93.4 kg

DRUGS (15)
  1. XANAX [Concomitant]
     Indication: ANXIETY
     Dosage: 1 MG, TID
     Route: 048
  2. AMITRIPTYLINE HCL [Concomitant]
     Dosage: DAILY DOSE 10 MG
     Route: 048
  3. CHANTIX [Interacting]
     Dosage: 1 MG, BID
     Route: 048
     Dates: start: 20100101, end: 20110501
  4. CIPROFLOXACIN HCL [Suspect]
     Indication: CYSTITIS
     Dosage: 500 MG, BID
     Route: 048
  5. TIZANIDINE HCL [Interacting]
     Indication: MUSCLE RELAXANT THERAPY
     Dosage: 4 MG, BID
     Route: 048
  6. HYDROCODONE BITARTRATE [Concomitant]
     Dosage: 7.5 MG, BID
     Route: 048
  7. NEXIUM [Concomitant]
     Dosage: DAILY DOSE 40 MG
     Route: 048
  8. CHANTIX [Interacting]
     Indication: EX-TOBACCO USER
     Dosage: 0.5 MG, QD
     Route: 048
     Dates: start: 20100804, end: 20100902
  9. AMLODIPINE [Concomitant]
     Indication: HYPERTENSION
     Dosage: DAILY DOSE 10 MG
     Route: 048
  10. FISH OIL [Concomitant]
     Dosage: DAILY DOSE 2000 MG
     Route: 048
  11. ALPRAZOLAM [Concomitant]
     Indication: ANXIETY
     Dosage: DAILY DOSE 1 MG
     Route: 048
  12. PROVENTIL [Concomitant]
     Dosage: 2 PUFF(S), PRN
  13. COZAAR [Concomitant]
     Indication: HYPERTENSION
     Dosage: DAILY DOSE 100 MG
     Route: 048
  14. ASPIRIN [Concomitant]
     Dosage: UNK
  15. SIMVASTATIN [Concomitant]
     Dosage: DAILY DOSE 80 MG
     Route: 048

REACTIONS (3)
  - HOMICIDAL IDEATION [None]
  - ANGER [None]
  - HOSTILITY [None]
